FAERS Safety Report 12658831 (Version 2)
Quarter: 2016Q3

REPORT INFORMATION
  Report Type: Spontaneous
  Country: BR (occurrence: BR)
  Receive Date: 20160817
  Receipt Date: 20160825
  Transmission Date: 20161109
  Serious: Yes (Other)
  Sender: FDA-Public Use
  Company Number: BR-ROCHE-1814689

PATIENT
  Age: 81 Year
  Sex: Male

DRUGS (4)
  1. ESBRIET [Suspect]
     Active Substance: PIRFENIDONE
     Indication: IDIOPATHIC PULMONARY FIBROSIS
  2. ESBRIET [Suspect]
     Active Substance: PIRFENIDONE
     Indication: SLEEP APNOEA SYNDROME
     Route: 065
     Dates: start: 201204
  3. AZATHIOPRINE. [Concomitant]
     Active Substance: AZATHIOPRINE
  4. ACETYLCYSTEINE. [Concomitant]
     Active Substance: ACETYLCYSTEINE

REACTIONS (2)
  - Oxygen saturation decreased [Unknown]
  - Pulmonary hypertension [Unknown]

NARRATIVE: CASE EVENT DATE: 201605
